FAERS Safety Report 9415909 (Version 2)
Quarter: 2013Q3

REPORT INFORMATION
  Report Type: Spontaneous
  Country: US (occurrence: US)
  Receive Date: 20130724
  Receipt Date: 20130902
  Transmission Date: 20140515
  Serious: Yes (Hospitalization)
  Sender: FDA-Public Use
  Company Number: US-BIOGENIDEC-2013BI065487

PATIENT
  Age: 28 Year
  Sex: Female

DRUGS (3)
  1. TYSABRI [Suspect]
     Indication: RELAPSING-REMITTING MULTIPLE SCLEROSIS
     Route: 042
     Dates: start: 20121026
  2. BACLOFEN [Concomitant]
  3. CLONAZEPAM [Concomitant]

REACTIONS (3)
  - Multiple sclerosis relapse [Recovered/Resolved]
  - Anxiety [Unknown]
  - Neuralgia [Not Recovered/Not Resolved]
